FAERS Safety Report 4345685-3 (Version None)
Quarter: 2004Q2

REPORT INFORMATION
  Report Type: 
  Country: None (occurrence: None)
  Receive Date: 20040421
  Receipt Date: 20040414
  Transmission Date: 20050107
  Serious: Yes (Congenital Anomaly)
  Sender: FDA-Public Use
  Company Number: US-JNJFOC-20040403517

PATIENT
  Sex: Female
  Weight: 2.7 kg

DRUGS (4)
  1. TOPAMAX [Suspect]
     Indication: MATERNAL DRUGS AFFECTING FOETUS
     Dosage: SEE IMAGE
     Route: 064
     Dates: start: 20030716, end: 20031119
  2. TOPAMAX [Suspect]
     Indication: MATERNAL DRUGS AFFECTING FOETUS
     Dosage: SEE IMAGE
     Route: 064
     Dates: start: 20031110, end: 20031210
  3. TOPAMAX [Suspect]
     Indication: MATERNAL DRUGS AFFECTING FOETUS
     Dosage: SEE IMAGE
     Route: 064
     Dates: start: 20030101
  4. ACETAZOLAMIDE [Concomitant]

REACTIONS (4)
  - CLEFT LIP AND PALATE [None]
  - MATERNAL DRUGS AFFECTING FOETUS [None]
  - PREGNANCY [None]
  - TALIPES [None]
